FAERS Safety Report 6376460-6 (Version None)
Quarter: 2009Q3

REPORT INFORMATION
  Report Type: 
  Country: None (occurrence: None)
  Receive Date: 20090922
  Receipt Date: 20090922
  Transmission Date: 20100115
  Serious: No
  Sender: FDA-Public Use
  Company Number: None

PATIENT
  Age: 45 Year
  Sex: Female
  Weight: 81.6475 kg

DRUGS (3)
  1. SINGULAIR [Suspect]
     Indication: COUGH
     Dosage: 10 MG ONCE DAILY PO
     Route: 048
     Dates: start: 20090723, end: 20090913
  2. SINGULAIR [Suspect]
     Indication: SECRETION DISCHARGE
     Dosage: 10 MG ONCE DAILY PO
     Route: 048
     Dates: start: 20090723, end: 20090913
  3. SINGULAIR [Suspect]
     Indication: SINUS OPERATION
     Dosage: 10 MG ONCE DAILY PO
     Route: 048
     Dates: start: 20090723, end: 20090913

REACTIONS (7)
  - ABDOMINAL DISTENSION [None]
  - APHASIA [None]
  - ARTHRALGIA [None]
  - DISTURBANCE IN ATTENTION [None]
  - PAIN IN EXTREMITY [None]
  - SWELLING [None]
  - WEIGHT INCREASED [None]
